FAERS Safety Report 10058120 (Version 1)
Quarter: 2014Q2

REPORT INFORMATION
  Report Type: Spontaneous
  Country: US (occurrence: None)
  Receive Date: 20140403
  Receipt Date: 20140403
  Transmission Date: 20141212
  Serious: Yes (Other)
  Sender: FDA-Public Use
  Company Number: None

PATIENT
  Age: 86 Year
  Sex: Male
  Weight: 69.85 kg

DRUGS (2)
  1. UROCIT-K [Suspect]
     Indication: DYSURIA
     Dosage: 1 PILL
     Route: 048
     Dates: start: 20140201, end: 20140402
  2. UROCIT-K [Suspect]
     Dosage: 1 PILL
     Route: 048
     Dates: start: 20140201, end: 20140402

REACTIONS (4)
  - Product size issue [None]
  - Product shape issue [None]
  - Foreign body [None]
  - Oropharyngeal pain [None]
